FAERS Safety Report 10279497 (Version 4)
Quarter: 2014Q3

REPORT INFORMATION
  Report Type: Report from Study
  Country: GB (occurrence: None)
  Receive Date: 20140701
  Receipt Date: 20140917
  Transmission Date: 20150326
  Serious: Yes (Death)
  Sender: FDA-Public Use
  Company Number: 2014SGN00747

PATIENT
  Age: 50 Year
  Sex: Female
  Weight: 118.8 kg

DRUGS (11)
  1. OMEPRAZOLE (OMEPRAZOLE) [Concomitant]
     Active Substance: OMEPRAZOLE
  2. BRENTUXIMAB VEDOTIN (BRENTUXIMAB VEDOTIN) INJECTION [Suspect]
     Active Substance: BRENTUXIMAB VEDOTIN
     Indication: MYCOSIS FUNGOIDES
     Dosage: 1.8 MG/KG, Q21D, INTRAVENOUS
     Route: 042
     Dates: start: 20131031, end: 20140516
  3. AMLODIPINE [Concomitant]
     Active Substance: AMLODIPINE BESYLATE
  4. DERMOL (BENZALKONIUM CHLORIDE, CHLORHEXIDINE HYDRICHLORIDE, ISOPROPYL MYRISATE, PARAFFIN, LIQUID) [Concomitant]
  5. FUROSEMIDE (FUROSEMIDE SODIUM) [Concomitant]
  6. FERROUS FUMARATE [Concomitant]
     Active Substance: FERROUS FUMARATE
  7. PARACETAMOL (PARACETAMOL) [Concomitant]
     Active Substance: ACETAMINOPHEN
  8. OXYCODONE (OXYCODONE) [Concomitant]
     Active Substance: OXYCODONE
  9. CETRABEN (LIGHT LIQUID PARAFFIN, WHITE SOFT PARAFFIN) [Concomitant]
  10. DOCUSATE (DOCUSATE) [Concomitant]
     Active Substance: DOCUSATE
  11. ZOPICLONE (ZOPICLONE) [Concomitant]
     Active Substance: ZOPICLONE

REACTIONS (6)
  - Lower respiratory tract infection [None]
  - Mycosis fungoides [None]
  - Hypertension [None]
  - Cardiac failure congestive [None]
  - Pulmonary embolism [None]
  - Pneumonia [None]

NARRATIVE: CASE EVENT DATE: 20140610
